FAERS Safety Report 9716012 (Version 1)
Quarter: 2013Q4

REPORT INFORMATION
  Report Type: Spontaneous
  Country: US (occurrence: US)
  Receive Date: 20131127
  Receipt Date: 20131127
  Transmission Date: 20140711
  Serious: No
  Sender: FDA-Public Use
  Company Number: US-BAYER-2013-144866

PATIENT
  Age: 69 Year
  Sex: Female
  Weight: 82.54 kg

DRUGS (5)
  1. ALEVE CAPLET [Suspect]
     Indication: MUSCLE STRAIN
     Dosage: UNK
     Route: 048
     Dates: start: 201104
  2. ALEVE CAPLET [Suspect]
     Indication: MUSCLE STRAIN
     Dosage: 1 DF, QD
     Route: 048
     Dates: start: 20131015
  3. LEVOTHYROXINE [Concomitant]
  4. CRESTOR [Concomitant]
  5. ASPIRIN [Concomitant]

REACTIONS (2)
  - Extra dose administered [None]
  - Incorrect drug administration duration [None]
